FAERS Safety Report 6500892-6 (Version None)
Quarter: 2009Q4

REPORT INFORMATION
  Report Type: 
  Country: None (occurrence: None)
  Receive Date: 20091216
  Receipt Date: 20090408
  Transmission Date: 20100525
  Serious: No
  Sender: FDA-Public Use
  Company Number: A0777766A

PATIENT
  Age: 58 Year
  Sex: Male

DRUGS (1)
  1. COMMIT [Suspect]
     Dates: start: 20090405, end: 20090405

REACTIONS (4)
  - DYSPEPSIA [None]
  - HICCUPS [None]
  - NAUSEA [None]
  - OROPHARYNGEAL PAIN [None]
